FAERS Safety Report 4459581-4 (Version None)
Quarter: 2004Q3

REPORT INFORMATION
  Report Type: 
  Country: None (occurrence: None)
  Receive Date: 20040910
  Receipt Date: 20040608
  Transmission Date: 20050211
  Serious: Yes (Other)
  Sender: FDA-Public Use
  Company Number: 2004218289US

PATIENT
  Age: 36 Year
  Sex: Male
  Weight: 90.7 kg

DRUGS (2)
  1. BEXTRA [Suspect]
     Indication: SWELLING
     Dosage: 1100 DAILY, ORAL;  1600 DAILY, ORAL
     Route: 048
     Dates: start: 20040607, end: 20040607
  2. BEXTRA [Suspect]
     Indication: SWELLING
     Dosage: 1100 DAILY, ORAL;  1600 DAILY, ORAL
     Route: 048
     Dates: start: 20040608, end: 20040608

REACTIONS (5)
  - ASTHENIA [None]
  - DIZZINESS [None]
  - DYSPNOEA [None]
  - HYPERHIDROSIS [None]
  - MALAISE [None]
